FAERS Safety Report 22335717 (Version 1)
Quarter: 2023Q2

REPORT INFORMATION
  Report Type: Spontaneous
  Country: US (occurrence: US)
  Receive Date: 20230518
  Receipt Date: 20230518
  Transmission Date: 20230722
  Serious: Yes (Hospitalization)
  Sender: FDA-Public Use
  Company Number: US-AVET LIFESCIENCES LTD-2023-AVET-000125

PATIENT
  Age: 35 Year
  Sex: Male

DRUGS (5)
  1. HYDROXYZINE PAMOATE [Suspect]
     Active Substance: HYDROXYZINE PAMOATE
     Indication: Anxiety
     Dosage: 50 MG BY MOUTH EVERY 6 HOURS
     Route: 048
  2. HYDROXYZINE PAMOATE [Suspect]
     Active Substance: HYDROXYZINE PAMOATE
     Indication: Insomnia
  3. RISPERIDONE [Suspect]
     Active Substance: RISPERIDONE
     Indication: Psychotic disorder
     Dosage: 2 MG BY MOUTH NIGHTLY AT BEDTIME.
  4. RISPERIDONE [Suspect]
     Active Substance: RISPERIDONE
     Dosage: TITRATED TO 4 MG BY MOUTH NIGHTLY
  5. RISPERIDONE [Suspect]
     Active Substance: RISPERIDONE
     Dosage: DECREASED TO 3 MG

REACTIONS (1)
  - Priapism [Recovered/Resolved]
